FAERS Safety Report 5136802-6 (Version None)
Quarter: 2006Q4

REPORT INFORMATION
  Report Type: 
  Country: None (occurrence: None)
  Receive Date: 20061023
  Receipt Date: 20061012
  Transmission Date: 20070319
  Serious: Yes (Hospitalization)
  Sender: FDA-Public Use
  Company Number: 231152

PATIENT
  Age: 14 Year
  Sex: Male
  Weight: 91.9 kg

DRUGS (6)
  1. XOLAIR [Suspect]
     Indication: ASTHMA
     Dosage: 375 MG/M2, SUBCUTANEOUS
     Route: 058
     Dates: start: 20060324
  2. FLOVENT [Concomitant]
  3. VENTOLIN NEBULIZER (ALBUTEROL/ALBUTEROL SULFATE) [Concomitant]
  4. MEDICATION (GENERIC COMPONENTS(S) [Concomitant]
  5. PREDNISONE TAB [Concomitant]
  6. THEOPHYLLINE [Concomitant]

REACTIONS (2)
  - ASTHMA [None]
  - CONDITION AGGRAVATED [None]
